FAERS Safety Report 21696371 (Version 1)
Quarter: 2022Q4

REPORT INFORMATION
  Report Type: Spontaneous
  Country: US (occurrence: US)
  Receive Date: 20221207
  Receipt Date: 20221207
  Transmission Date: 20230113
  Serious: Yes (Other)
  Sender: FDA-Public Use
  Company Number: US-NOVOPROD-864324

PATIENT
  Sex: Male

DRUGS (1)
  1. NOVOLIN 70/30 [Suspect]
     Active Substance: INSULIN HUMAN
     Indication: Product used for unknown indication
     Dosage: 37 IU, QD (32 IU AM, THEN 2ND DOSE IS 5 IU)
     Route: 058

REACTIONS (3)
  - Blood glucose increased [Not Recovered/Not Resolved]
  - Drug ineffective [Unknown]
  - Product quality issue [Not Recovered/Not Resolved]
